FAERS Safety Report 8222005 (Version 4)
Quarter: 2013Q3

REPORT INFORMATION
  Report Type: Spontaneous
  Country: TR (occurrence: TR)
  Receive Date: 20111102
  Receipt Date: 20130807
  Transmission Date: 20140515
  Serious: Yes (Disabling)
  Sender: FDA-Public Use
  Company Number: TR-GENZYME-CERZ-1002285

PATIENT
  Age: 12 Year
  Sex: Female
  Weight: 34 kg

DRUGS (1)
  1. CEREZYME [Suspect]
     Indication: GAUCHER^S DISEASE
     Dosage: 60 U/KG, Q2W
     Route: 042
     Dates: start: 20010107

REACTIONS (1)
  - Deafness [Unknown]
